FAERS Safety Report 10528442 (Version 1)
Quarter: 2014Q4

REPORT INFORMATION
  Report Type: Spontaneous
  Country: CN (occurrence: CN)
  Receive Date: 20141020
  Receipt Date: 20141020
  Transmission Date: 20150528
  Serious: Yes (Other)
  Sender: FDA-Public Use
  Company Number: CN-PFIZER INC-2014285906

PATIENT
  Age: 28 Year
  Sex: Female
  Weight: 80 kg

DRUGS (3)
  1. VANCOMYCIN [Concomitant]
     Active Substance: VANCOMYCIN
     Indication: PYREXIA
     Dosage: 1 G, 2X/DAY (Q12H)
     Route: 041
     Dates: start: 20140409, end: 20140411
  2. SULPERAZON [Concomitant]
     Active Substance: CEFOPERAZONE SODIUM\SULBACTAM SODIUM
     Indication: PYREXIA
     Dosage: 2 G, 3X/DAY
     Route: 041
     Dates: start: 20140408, end: 20140413
  3. VFEND [Suspect]
     Active Substance: VORICONAZOLE
     Indication: PYREXIA
     Dosage: 0.2 G, 2X/DAY
     Route: 041
     Dates: start: 20140408, end: 20140417

REACTIONS (4)
  - Irritability [Recovered/Resolved]
  - Agitation [Recovered/Resolved]
  - Chills [Recovered/Resolved]
  - Mental disorder [Recovered/Resolved]

NARRATIVE: CASE EVENT DATE: 20140410
